FAERS Safety Report 21141154 (Version 1)
Quarter: 2022Q3

REPORT INFORMATION
  Report Type: Spontaneous
  Country: US (occurrence: US)
  Receive Date: 20220728
  Receipt Date: 20220728
  Transmission Date: 20221027
  Serious: No
  Sender: FDA-Public Use
  Company Number: US-JNJFOC-20220744097

PATIENT
  Age: 82 Year
  Sex: Female
  Weight: 81.65 kg

DRUGS (13)
  1. ZYRTEC [Suspect]
     Active Substance: CETIRIZINE HYDROCHLORIDE
     Indication: Rash
     Route: 065
  2. ZYRTEC [Suspect]
     Active Substance: CETIRIZINE HYDROCHLORIDE
     Indication: Angioedema
  3. ZYRTEC [Suspect]
     Active Substance: CETIRIZINE HYDROCHLORIDE
     Indication: Pruritus
  4. ZYRTEC [Suspect]
     Active Substance: CETIRIZINE HYDROCHLORIDE
     Indication: Skin mass
  5. CLARITIN [Concomitant]
     Active Substance: LORATADINE
     Indication: Rash
     Route: 065
  6. CLARITIN [Concomitant]
     Active Substance: LORATADINE
     Indication: Angioedema
  7. CLARITIN [Concomitant]
     Active Substance: LORATADINE
     Indication: Pruritus
  8. CLARITIN [Concomitant]
     Active Substance: LORATADINE
     Indication: Skin mass
  9. PFIZER-BIONTECH COVID-19 VACCINE [Concomitant]
     Active Substance: TOZINAMERAN
     Indication: Immunisation
     Dosage: LEFT ARM ; 1ST DOSE
     Route: 065
     Dates: start: 20210520
  10. PFIZER-BIONTECH COVID-19 VACCINE [Concomitant]
     Active Substance: TOZINAMERAN
     Dosage: LEFT ARM ; 2ND DOSE
     Route: 065
     Dates: start: 20210608
  11. PFIZER-BIONTECH COVID-19 VACCINE [Concomitant]
     Active Substance: TOZINAMERAN
     Dosage: LEFT ARM ; BOOSTER DOSE
     Route: 065
     Dates: start: 20211228
  12. BENADRYL [Concomitant]
     Active Substance: DIPHENHYDRAMINE HYDROCHLORIDE
     Indication: Acne
     Route: 065
  13. BENADRYL [Concomitant]
     Active Substance: DIPHENHYDRAMINE HYDROCHLORIDE
     Indication: Dyspnoea

REACTIONS (2)
  - Off label use [Unknown]
  - Overdose [Unknown]
